FAERS Safety Report 14536749 (Version 1)
Quarter: 2018Q1

REPORT INFORMATION
  Report Type: Spontaneous
  Country: NL (occurrence: NL)
  Receive Date: 20180215
  Receipt Date: 20180215
  Transmission Date: 20180509
  Serious: Yes (Hospitalization)
  Sender: FDA-Public Use
  Company Number: NL-TEVA-2018-NL-856067

PATIENT
  Age: 72 Year
  Sex: Female

DRUGS (9)
  1. TERBINAFINE. [Suspect]
     Active Substance: TERBINAFINE
     Indication: FUNGAL SKIN INFECTION
     Dosage: 1 TIME A DAY 1 PIECE
     Dates: start: 20171116, end: 20171127
  2. ACETYLSALICYLIC ACID 80 MG [Concomitant]
     Dosage: ONCE DAILY 1
     Dates: start: 20170912
  3. GLUCAGON HYPOKIT [Concomitant]
     Dosage: AS REQUIRED
     Dates: start: 20160719
  4. MACROGOL [Concomitant]
     Active Substance: POLYETHYLENE GLYCOLS
     Dosage: ONCE DAILY 1
  5. THYRAX 0,025MG [Concomitant]
     Dosage: ONCE DAILY 3
     Dates: start: 20170912
  6. NOVORAPID [Concomitant]
     Active Substance: INSULIN ASPART
     Dosage: THREE TIMES DAILY 10 IU
     Dates: start: 20170713
  7. PANTOPRAZOL 49MG [Concomitant]
     Dosage: ONCE DAILY 1
     Dates: start: 20170912
  8. LANTUS [Concomitant]
     Active Substance: INSULIN GLARGINE
     Dosage: ONCE DAILY 26 IU
     Dates: start: 20170804
  9. PRAVASTATINE 40MG [Concomitant]
     Dosage: ONCE DAILY 1
     Dates: start: 20170912

REACTIONS (1)
  - Toxic skin eruption [Recovering/Resolving]

NARRATIVE: CASE EVENT DATE: 20171119
